FAERS Safety Report 18732046 (Version 2)
Quarter: 2021Q1

REPORT INFORMATION
  Report Type: Report from Study
  Country: BR (occurrence: MX)
  Receive Date: 20210112
  Receipt Date: 20210201
  Transmission Date: 20210419
  Serious: No
  Sender: FDA-Public Use
  Company Number: MX-SA-2021SA006036

PATIENT
  Age: 42 Year
  Sex: Male
  Weight: 103 kg

DRUGS (3)
  1. KARET [Concomitant]
     Dosage: 100 MG, QD
     Dates: start: 201905
  2. NOVOTIRAL [Concomitant]
     Active Substance: LEVOTHYROXINE
     Indication: THYROID CANCER
     Dosage: 25 MG, QD
     Dates: start: 201905
  3. THYROTROPIN ALFA [Suspect]
     Active Substance: THYROTROPIN ALFA
     Indication: THYROID CANCER
     Dosage: 0.9 MG/ML, 2 DF
     Route: 030
     Dates: start: 20190823

REACTIONS (5)
  - Weight decreased [Recovering/Resolving]
  - COVID-19 [Not Recovered/Not Resolved]
  - Fatigue [Recovering/Resolving]
  - Headache [Recovering/Resolving]
  - Hyperhidrosis [Recovering/Resolving]

NARRATIVE: CASE EVENT DATE: 20210106
